FAERS Safety Report 6967635-3 (Version None)
Quarter: 2010Q3

REPORT INFORMATION
  Report Type: 
  Country: None (occurrence: None)
  Receive Date: 20100907
  Receipt Date: 20100825
  Transmission Date: 20110219
  Serious: Yes (Other)
  Sender: FDA-Public Use
  Company Number: US-JNJFOC-20100900411

PATIENT
  Age: 48 Year
  Sex: Female

DRUGS (4)
  1. RISPERDAL [Suspect]
     Indication: EMOTIONAL DISORDER
     Route: 048
  2. RISPERDAL [Suspect]
     Route: 048
  3. AMBIEN [Concomitant]
     Indication: INSOMNIA
     Route: 048
  4. CLONAZEPAM [Concomitant]
     Indication: ANXIETY
     Route: 048

REACTIONS (2)
  - INCORRECT DOSE ADMINISTERED [None]
  - WITHDRAWAL SYNDROME [None]
